FAERS Safety Report 11453861 (Version 1)
Quarter: 2015Q3

REPORT INFORMATION
  Report Type: Report from Study
  Country: US (occurrence: US)
  Receive Date: 20150903
  Receipt Date: 20150903
  Transmission Date: 20151125
  Serious: Yes (Other)
  Sender: FDA-Public Use
  Company Number: US-BIOGENIDEC-2015BI119350

PATIENT
  Age: 73 Year
  Sex: Female

DRUGS (10)
  1. TECFIDERA [Suspect]
     Active Substance: DIMETHYL FUMARATE
     Indication: MULTIPLE SCLEROSIS
     Route: 048
     Dates: start: 20130729
  2. FOLIC ACID. [Concomitant]
     Active Substance: FOLIC ACID
  3. CALCITRIOL. [Concomitant]
     Active Substance: CALCITRIOL
  4. GABAPENTIN. [Concomitant]
     Active Substance: GABAPENTIN
  5. GLIPIZIDE. [Concomitant]
     Active Substance: GLIPIZIDE
  6. VIMPAT [Concomitant]
     Active Substance: LACOSAMIDE
  7. SIMVASTATIN. [Concomitant]
     Active Substance: SIMVASTATIN
  8. ASPIRIN. [Concomitant]
     Active Substance: ASPIRIN
  9. LANTUS [Concomitant]
     Active Substance: INSULIN GLARGINE
  10. FERROUS SULFATE [Concomitant]
     Active Substance: FERROUS SULFATE\FERROUS SULFATE, DRIED

REACTIONS (4)
  - Neck pain [Not Recovered/Not Resolved]
  - Seizure [Not Recovered/Not Resolved]
  - Musculoskeletal pain [Not Recovered/Not Resolved]
  - Musculoskeletal disorder [Not Recovered/Not Resolved]

NARRATIVE: CASE EVENT DATE: 201507
